FAERS Safety Report 4923336-4 (Version None)
Quarter: 2006Q1

REPORT INFORMATION
  Report Type: 
  Country: None (occurrence: None)
  Receive Date: 20060222
  Receipt Date: 20060222
  Transmission Date: 20060701
  Serious: No
  Sender: FDA-Public Use
  Company Number: None

PATIENT

DRUGS (2)
  1. IMIPENEM/CILASTATIN [Suspect]
     Dosage: SOLUTION
  2. NOREPINEPHRINE [Suspect]
     Dosage: SOLUTION

REACTIONS (3)
  - BLOOD PRESSURE SYSTOLIC INCREASED [None]
  - HEART RATE INCREASED [None]
  - WRONG DRUG ADMINISTERED [None]
